FAERS Safety Report 14604398 (Version 1)
Quarter: 2018Q1

REPORT INFORMATION
  Report Type: Spontaneous
  Country: US (occurrence: US)
  Receive Date: 20180306
  Receipt Date: 20180306
  Transmission Date: 20180509
  Serious: No
  Sender: FDA-Public Use
  Company Number: US-BAYER-2018-038766

PATIENT
  Age: 92 Year
  Sex: Female
  Weight: 82 kg

DRUGS (3)
  1. BAYER LOW DOSE [Suspect]
     Active Substance: ASPIRIN
     Indication: ISCHAEMIC HEART DISEASE PROPHYLAXIS
     Dosage: UNK
  2. ALEVE [Suspect]
     Active Substance: NAPROXEN SODIUM
     Dosage: UNK
     Route: 065
  3. CITRACAL MAXIMUM [Suspect]
     Active Substance: CALCIUM CITRATE\CHOLECALCIFEROL
     Dosage: UNK 2 MAYBE 3 A DAY
     Route: 048
     Dates: start: 2017

REACTIONS (7)
  - Drug intolerance [Unknown]
  - Drug administration error [None]
  - Product use issue [Unknown]
  - Abdominal discomfort [Unknown]
  - Expired product administered [Unknown]
  - Off label use [None]
  - Product use in unapproved indication [None]
